FAERS Safety Report 16077910 (Version 1)
Quarter: 2019Q1

REPORT INFORMATION
  Report Type: Spontaneous
  Country: US (occurrence: US)
  Receive Date: 20190315
  Receipt Date: 20190315
  Transmission Date: 20190418
  Serious: No
  Sender: FDA-Public Use
  Company Number: US-PFIZER INC-2018533913

PATIENT
  Age: 48 Year
  Sex: Female
  Weight: 107.1 kg

DRUGS (3)
  1. PARAPLATIN [Concomitant]
     Active Substance: CARBOPLATIN
     Dosage: UNK
  2. DOCETAXEL. [Suspect]
     Active Substance: DOCETAXEL
     Indication: BREAST CANCER FEMALE
     Dosage: 167 MG, CYCLIC (EVERY THREE WEEKS)
     Dates: start: 20120202, end: 20120524
  3. TAXOTERE [Suspect]
     Active Substance: DOCETAXEL
     Dosage: 167 MG, CYCLIC (EVERY THREE WEEKS)
     Dates: start: 20120202, end: 20120524

REACTIONS (5)
  - Hair colour changes [Not Recovered/Not Resolved]
  - Alopecia [Not Recovered/Not Resolved]
  - Hair texture abnormal [Not Recovered/Not Resolved]
  - Madarosis [Not Recovered/Not Resolved]
  - Hair disorder [Not Recovered/Not Resolved]

NARRATIVE: CASE EVENT DATE: 201212
